FAERS Safety Report 8265463-2 (Version None)
Quarter: 2012Q2

REPORT INFORMATION
  Report Type: 
  Country: None (occurrence: None)
  Receive Date: 20120406
  Receipt Date: 20120328
  Transmission Date: 20120825
  Serious: Yes (Hospitalization, Other)
  Sender: FDA-Public Use
  Company Number: DE-UCBSA-053922

PATIENT
  Age: 26 Year
  Sex: Female
  Weight: 69 kg

DRUGS (3)
  1. KEPPRA [Suspect]
     Indication: EPILEPSY
     Dosage: 1-0-1
     Route: 048
     Dates: start: 20110401
  2. ENOXAPARIN SODIUM [Concomitant]
  3. FRAXIPARINE [Concomitant]
     Dosage: 0.3 READY TO USE SYRINGE
     Route: 058

REACTIONS (1)
  - VASCULAR NEOPLASM [None]
